FAERS Safety Report 14169683 (Version 1)
Quarter: 2017Q4

REPORT INFORMATION
  Report Type: Spontaneous
  Country: DE (occurrence: DE)
  Receive Date: 20171108
  Receipt Date: 20171108
  Transmission Date: 20180321
  Serious: Yes (Disabling)
  Sender: FDA-Public Use
  Company Number: DE-DRREDDYS-GER/GER/17/0094384

PATIENT
  Age: 50 Year
  Sex: Female
  Weight: 60 kg

DRUGS (1)
  1. CIPROFLOXACIN. [Suspect]
     Active Substance: CIPROFLOXACIN
     Indication: CYSTITIS NONINFECTIVE
     Route: 048
     Dates: start: 20161221

REACTIONS (5)
  - Loss of personal independence in daily activities [Unknown]
  - Condition aggravated [Unknown]
  - Coordination abnormal [Unknown]
  - Hypoaesthesia [Unknown]
  - Muscular weakness [Unknown]
